FAERS Safety Report 5412608-5 (Version None)
Quarter: 2007Q3

REPORT INFORMATION
  Report Type: 
  Country: None (occurrence: None)
  Receive Date: 20070713
  Receipt Date: 20070510
  Transmission Date: 20080115
  Serious: Yes (Hospitalization, Other)
  Sender: FDA-Public Use
  Company Number: US-JNJFOC-20060904205

PATIENT
  Age: 20 Year
  Sex: Female
  Weight: 79.3795 kg

DRUGS (6)
  1. ORTHO EVRA [Suspect]
     Indication: CONTRACEPTION
     Dosage: TRANSDERMAL
     Route: 062
     Dates: start: 20040701, end: 20040901
  2. E-MYCIN (ERYTHROMYCIN) TABLET [Concomitant]
  3. HYDROCODONE BITARTRATE [Concomitant]
  4. IMITREX [Concomitant]
  5. HEPARIN [Concomitant]
  6. PRENATAL VITAMINS (PRENATAL VITAMINS) [Concomitant]

REACTIONS (2)
  - DEEP VEIN THROMBOSIS [None]
  - PULMONARY EMBOLISM [None]
